FAERS Safety Report 10705365 (Version 2)
Quarter: 2015Q1

REPORT INFORMATION
  Report Type: Report from Study
  Country: BE (occurrence: BE)
  Receive Date: 20150112
  Receipt Date: 20150123
  Transmission Date: 20150721
  Serious: Yes (Life-Threatening, Hospitalization)
  Sender: FDA-Public Use
  Company Number: BE-JNJFOC-20150105813

PATIENT
  Age: 68 Year
  Sex: Male

DRUGS (11)
  1. IBRUTINIB [Suspect]
     Active Substance: IBRUTINIB
     Indication: MANTLE CELL LYMPHOMA
     Route: 048
     Dates: start: 20140911, end: 20141014
  2. ALLOPURINOL. [Concomitant]
     Active Substance: ALLOPURINOL
  3. PANTOPRAZOLE [Concomitant]
     Active Substance: PANTOPRAZOLE SODIUM
  4. SOTALEX [Concomitant]
     Active Substance: SOTALOL
  5. LESCOL (FLUVASTATIN SODIUM) [Concomitant]
  6. ATACAND [Concomitant]
     Active Substance: CANDESARTAN CILEXETIL
  7. LORAMET [Concomitant]
     Active Substance: LORMETAZEPAM
  8. ZOLPIDEM [Concomitant]
     Active Substance: ZOLPIDEM\ZOLPIDEM TARTRATE
  9. PRADAXA [Concomitant]
     Active Substance: DABIGATRAN ETEXILATE MESYLATE
     Dosage: 2 X 110
  10. DAFALGAN [Concomitant]
     Active Substance: ACETAMINOPHEN
  11. BURINEX [Concomitant]
     Active Substance: BUMETANIDE
     Dosage: 1/2

REACTIONS (1)
  - Ventricular tachycardia [Recovered/Resolved]

NARRATIVE: CASE EVENT DATE: 20141014
